FAERS Safety Report 7074789-X (Version None)
Quarter: 2010Q4

REPORT INFORMATION
  Report Type: 
  Country: None (occurrence: None)
  Receive Date: 20101029
  Receipt Date: 20101014
  Transmission Date: 20110411
  Serious: Yes (Hospitalization, Other)
  Sender: FDA-Public Use
  Company Number: US-AMGEN-QUU436475

PATIENT

DRUGS (20)
  1. NPLATE [Suspect]
     Indication: IDIOPATHIC THROMBOCYTOPENIC PURPURA
     Dosage: 5 A?G/KG, UNK
     Dates: start: 20090924, end: 20100216
  2. NPLATE [Suspect]
     Dosage: 5 A?G/KG, UNK
     Dates: start: 20090924, end: 20100216
  3. NPLATE [Suspect]
     Dosage: 5 A?G/KG, UNK
     Dates: start: 20090924, end: 20100216
  4. NPLATE [Suspect]
     Dosage: 5 A?G/KG, UNK
     Dates: start: 20090924, end: 20100216
  5. NPLATE [Suspect]
     Dosage: 5 A?G/KG, UNK
     Dates: start: 20090924, end: 20100216
  6. NPLATE [Suspect]
     Dosage: 5 A?G/KG, UNK
     Dates: start: 20090924, end: 20100216
  7. NPLATE [Suspect]
     Dosage: 5 A?G/KG, UNK
     Dates: start: 20090924, end: 20100216
  8. NPLATE [Suspect]
     Dosage: 5 A?G/KG, UNK
     Dates: start: 20090924, end: 20100216
  9. NPLATE [Suspect]
     Dosage: 5 A?G/KG, UNK
     Dates: start: 20090924, end: 20100216
  10. NPLATE [Suspect]
     Dosage: 5 A?G/KG, UNK
     Dates: start: 20090924, end: 20100216
  11. IMMU-G [Concomitant]
     Dosage: UNK UNK, UNK
     Route: 042
     Dates: start: 20050501
  12. FENTANYL CITRATE [Concomitant]
     Dosage: 75 A?G, QH
     Route: 062
  13. HYDROMORPHONE HYDROCHLORIDE [Concomitant]
     Dosage: 4 MG, Q4H
     Route: 048
  14. NOVOLIN 70/30 [Concomitant]
     Dosage: UNK UNK, BID
  15. VALACYCLOVIR HYDROCHLORIDE [Concomitant]
     Dosage: 500 MG, BID
  16. LISINOPRIL AND HYDROCHLOROTHIAZIDE [Concomitant]
     Dosage: UNK UNK, QD
  17. SENNA CONCENTRATE [Concomitant]
     Dosage: UNK UNK, QD
  18. ZOLPIDEM TARTRATE [Concomitant]
  19. POTASSIUM CHLORIDE [Concomitant]
     Dosage: 8 MEQ, BID
     Route: 048
  20. METFORMIN [Concomitant]

REACTIONS (17)
  - ACCESSORY SPLEEN [None]
  - APHAGIA [None]
  - ASTHENIA [None]
  - COUGH [None]
  - DEEP VEIN THROMBOSIS [None]
  - DEHYDRATION [None]
  - DIZZINESS [None]
  - DYSPNOEA [None]
  - FATIGUE [None]
  - HEADACHE [None]
  - HOT FLUSH [None]
  - HYPOTENSION [None]
  - MALAISE [None]
  - NAUSEA [None]
  - RENAL FAILURE ACUTE [None]
  - THROMBOCYTOPENIA [None]
  - WEIGHT DECREASED [None]
